FAERS Safety Report 20695126 (Version 3)
Quarter: 2022Q2

REPORT INFORMATION
  Report Type: Spontaneous
  Country: US (occurrence: US)
  Receive Date: 20220411
  Receipt Date: 20220607
  Transmission Date: 20220721
  Serious: Yes (Hospitalization, Other)
  Sender: FDA-Public Use
  Company Number: US-MLMSERVICE-20220329-3454937-1

PATIENT
  Age: 39 Year
  Sex: Male

DRUGS (1)
  1. EPINEPHRINE [Suspect]
     Active Substance: EPINEPHRINE
     Indication: Anaphylactic reaction
     Dosage: 0.3 ML, SINGLE
     Route: 042

REACTIONS (5)
  - Incorrect route of product administration [Unknown]
  - Overdose [Unknown]
  - Stress cardiomyopathy [Recovering/Resolving]
  - Bradycardia [Recovering/Resolving]
  - Hypotension [Unknown]
